FAERS Safety Report 4575837-9 (Version None)
Quarter: 2005Q1

REPORT INFORMATION
  Report Type: 
  Country: None (occurrence: None)
  Receive Date: 20050201
  Receipt Date: 20050201
  Transmission Date: 20050727
  Serious: Yes (Death)
  Sender: FDA-Public Use
  Company Number: None

PATIENT
  Sex: Male
  Weight: 72.5755 kg

DRUGS (1)
  1. NEURONTIN [Suspect]

REACTIONS (2)
  - COMPLETED SUICIDE [None]
  - PERSONALITY CHANGE [None]
